FAERS Safety Report 14299475 (Version 1)
Quarter: 2017Q4

REPORT INFORMATION
  Report Type: Spontaneous
  Country: US (occurrence: US)
  Receive Date: 20171219
  Receipt Date: 20171219
  Transmission Date: 20180321
  Serious: Yes (Other)
  Sender: FDA-Public Use
  Company Number: US-ALKEM LABORATORIES LIMITED-US-ALKEM-2017-01104

PATIENT
  Age: 34 Year
  Sex: Male

DRUGS (8)
  1. AMPHOTERICIN B. [Concomitant]
     Active Substance: AMPHOTERICIN B
     Indication: CANDIDA INFECTION
     Dosage: 300 MG, QD
     Route: 042
  2. AMPHOTERICIN B. [Concomitant]
     Active Substance: AMPHOTERICIN B
     Indication: ENTEROCOCCAL INFECTION
  3. PIPERACILLIN/TAZOBACTAM [Concomitant]
     Active Substance: PIPERACILLIN SODIUM\TAZOBACTAM SODIUM
     Indication: ENTEROCOCCAL INFECTION
  4. MICAFUNGIN [Concomitant]
     Active Substance: MICAFUNGIN
     Indication: ENTEROCOCCAL INFECTION
  5. LINEZOLID. [Suspect]
     Active Substance: LINEZOLID
     Indication: CANDIDA INFECTION
     Dosage: 600 MG, BID
     Route: 042
  6. LINEZOLID. [Suspect]
     Active Substance: LINEZOLID
     Indication: ENTEROCOCCAL INFECTION
  7. MICAFUNGIN [Concomitant]
     Active Substance: MICAFUNGIN
     Indication: CANDIDA INFECTION
     Dosage: 100 MG, QD
     Route: 042
  8. PIPERACILLIN/TAZOBACTAM [Concomitant]
     Active Substance: PIPERACILLIN SODIUM\TAZOBACTAM SODIUM
     Indication: CANDIDA INFECTION
     Dosage: 2.25 G, TID
     Route: 042

REACTIONS (4)
  - Lactic acidosis [Unknown]
  - Pancreatitis acute [Unknown]
  - Hypoglycaemia [Unknown]
  - Toxicity to various agents [Unknown]
